FAERS Safety Report 7670562 (Version 4)
Quarter: 2014Q1

REPORT INFORMATION
  Report Type: Spontaneous
  Country: US (occurrence: US)
  Receive Date: 20101116
  Receipt Date: 20140307
  Transmission Date: 20141002
  Serious: Yes (Other)
  Sender: FDA-Public Use
  Company Number: US-ROCHE-718744

PATIENT
  Age: 18 Year
  Sex: Female
  Weight: 77.1 kg

DRUGS (2)
  1. ACCUTANE [Suspect]
     Indication: ACNE
     Dosage: START DATE: SPRING 2000
     Route: 065
  2. ACCUTANE [Suspect]
     Dosage: START DATE: SPRING 2002
     Route: 065

REACTIONS (5)
  - Gastrointestinal injury [Unknown]
  - Crohn^s disease [Unknown]
  - Inflammatory bowel disease [Unknown]
  - Intestinal obstruction [Unknown]
  - Anal fissure [Unknown]
